FAERS Safety Report 5920873-0 (Version None)
Quarter: 2008Q4

REPORT INFORMATION
  Report Type: 
  Country: None (occurrence: None)
  Receive Date: 20081015
  Receipt Date: 20081015
  Transmission Date: 20090506
  Serious: No
  Sender: FDA-Public Use
  Company Number: None

PATIENT
  Age: 4 Year
  Sex: Male
  Weight: 16.7831 kg

DRUGS (3)
  1. SINGULAIR [Suspect]
     Indication: ASTHMA
     Dosage: 1 CHEWABLE TABLET ONCE/DAY
     Route: 048
     Dates: start: 20080829, end: 20081009
  2. SINGULAIR [Suspect]
     Indication: NASOPHARYNGITIS
     Dosage: 1 CHEWABLE TABLET ONCE/DAY
     Route: 048
     Dates: start: 20080829, end: 20081009
  3. SINGULAIR [Suspect]
     Indication: RHINITIS
     Dosage: 1 CHEWABLE TABLET ONCE/DAY
     Route: 048
     Dates: start: 20080829, end: 20081009

REACTIONS (5)
  - ABNORMAL BEHAVIOUR [None]
  - CRYING [None]
  - DECREASED APPETITE [None]
  - MOOD ALTERED [None]
  - TIC [None]
